FAERS Safety Report 26198428 (Version 1)
Quarter: 2025Q4

REPORT INFORMATION
  Report Type: Spontaneous
  Country: US (occurrence: US)
  Receive Date: 20251224
  Receipt Date: 20251224
  Transmission Date: 20260117
  Serious: No
  Sender: BRISTOL-MYERS SQUIBB COMPANY
  Company Number: US-BRISTOL-MYERS SQUIBB COMPANY-2025-172421

PATIENT
  Age: 58 Year
  Sex: Female

DRUGS (3)
  1. ORENCIA [Suspect]
     Active Substance: ABATACEPT
     Indication: Rheumatoid arthritis
     Route: 058
     Dates: start: 202510
  2. MOBIC [Suspect]
     Active Substance: MELOXICAM
     Indication: Product used for unknown indication
  3. PREDNISONE [Suspect]
     Active Substance: PREDNISONE
     Indication: Product used for unknown indication

REACTIONS (8)
  - Epistaxis [Unknown]
  - Blood urea increased [Unknown]
  - Skin mass [Unknown]
  - Arthralgia [Unknown]
  - Blood creatinine increased [Unknown]
  - Abdominal pain upper [Unknown]
  - Joint swelling [Unknown]
  - Back pain [Unknown]

NARRATIVE: CASE EVENT DATE: 20251101
